FAERS Safety Report 12194202 (Version 3)
Quarter: 2016Q2

REPORT INFORMATION
  Report Type: Spontaneous
  Country: US (occurrence: US)
  Receive Date: 20160321
  Receipt Date: 20160524
  Transmission Date: 20160815
  Serious: Yes (Other)
  Sender: FDA-Public Use
  Company Number: PHEH2016US006229

PATIENT
  Sex: Male
  Weight: 88.44 kg

DRUGS (2)
  1. VOTRIENT [Suspect]
     Active Substance: PAZOPANIB HYDROCHLORIDE
     Indication: MALIGNANT CONNECTIVE TISSUE NEOPLASM
     Dosage: 600 MG, QD
     Route: 048
     Dates: start: 20160219
  2. VOTRIENT [Suspect]
     Active Substance: PAZOPANIB HYDROCHLORIDE
     Indication: SOFT TISSUE SARCOMA

REACTIONS (5)
  - Sinusitis [Unknown]
  - Glossodynia [Unknown]
  - Diarrhoea [Unknown]
  - Weight decreased [Unknown]
  - Dyspepsia [Unknown]
